FAERS Safety Report 25637617 (Version 2)
Quarter: 2025Q3

REPORT INFORMATION
  Report Type: Spontaneous
  Country: US (occurrence: US)
  Receive Date: 20250804
  Receipt Date: 20250817
  Transmission Date: 20251020
  Serious: Yes (Other)
  Sender: APOTEX
  Company Number: US-APOTEX-2025AP010956

PATIENT
  Age: 64 Year
  Sex: Female

DRUGS (5)
  1. LACOSAMIDE [Interacting]
     Active Substance: LACOSAMIDE
     Indication: Malignant catatonia
     Dosage: 200 MILLIGRAM, BID
     Route: 065
  2. CARBIDOPA AND LEVODOPA [Concomitant]
     Active Substance: CARBIDOPA\LEVODOPA
     Indication: Malignant catatonia
     Dosage: UNK, BID, DOSE- 10/100 MG
     Route: 065
  3. LORAZEPAM [Concomitant]
     Active Substance: LORAZEPAM
     Indication: Malignant catatonia
     Dosage: 2 MILLIGRAM, TID
     Route: 048
  4. LORAZEPAM [Concomitant]
     Active Substance: LORAZEPAM
     Dosage: 6 MILLIGRAM, TID
     Route: 048
  5. AMANTADINE [Concomitant]
     Active Substance: AMANTADINE
     Indication: Malignant catatonia
     Dosage: 200 MILLIGRAM, QD (TITRATED OVER THREE WEEKS)
     Route: 065

REACTIONS (4)
  - Malignant catatonia [Recovering/Resolving]
  - Condition aggravated [Recovering/Resolving]
  - Drug interaction [Recovering/Resolving]
  - Therapeutic product effect decreased [Unknown]
